FAERS Safety Report 16248156 (Version 8)
Quarter: 2020Q2

REPORT INFORMATION
  Report Type: Report from Study
  Country: BR (occurrence: BR)
  Receive Date: 20190428
  Receipt Date: 20200617
  Transmission Date: 20200713
  Serious: Yes (Hospitalization, Disabling)
  Sender: FDA-Public Use
  Company Number: BR-BIOGEN-2019BI00729093

PATIENT
  Age: 1 Year
  Sex: Female
  Weight: 8.8 kg

DRUGS (10)
  1. ACEBROFILINA [Concomitant]
     Active Substance: AMBROXOL ACEFYLLINATE
     Indication: PRODUCT USED FOR UNKNOWN INDICATION
     Route: 065
  2. ATROVENT [Concomitant]
     Active Substance: IPRATROPIUM BROMIDE
     Indication: RESPIRATORY DISTRESS
     Route: 065
  3. BEROTEC [Concomitant]
     Active Substance: FENOTEROL HYDROBROMIDE
     Dosage: FOR RESPIRATORY DISTRESS AND BRONCHOSPASM
     Route: 065
  4. ATROVENT [Concomitant]
     Active Substance: IPRATROPIUM BROMIDE
     Dosage: FOR RESPIRATORY DISTRESS AND BRONCHOSPASM
     Route: 065
  5. ASTRO [Concomitant]
     Indication: PRODUCT USED FOR UNKNOWN INDICATION
     Route: 065
  6. PREDNISONE. [Concomitant]
     Active Substance: PREDNISONE
     Indication: RESPIRATORY DISTRESS
     Route: 065
  7. CLENIL A [Concomitant]
     Active Substance: BECLOMETHASONE DIPROPIONATE
     Indication: PRODUCT USED FOR UNKNOWN INDICATION
     Route: 065
  8. SPINRAZA [Suspect]
     Active Substance: NUSINERSEN
     Indication: SPINAL MUSCULAR ATROPHY
     Dosage: STARTED BETWEEN SEPTEMBER OR OCTOBER 2018
     Route: 037
     Dates: start: 20180901
  9. ALLEGRA [Concomitant]
     Active Substance: FEXOFENADINE HYDROCHLORIDE
     Indication: PRODUCT USED FOR UNKNOWN INDICATION
     Route: 065
  10. BEROTEC [Concomitant]
     Active Substance: FENOTEROL HYDROBROMIDE
     Indication: RESPIRATORY DISTRESS
     Route: 065

REACTIONS (27)
  - Vomiting [Unknown]
  - Weight decreased [Recovered/Resolved]
  - Enzyme abnormality [Recovered/Resolved]
  - Gastrin secretion disorder [Unknown]
  - Anal incontinence [Recovered/Resolved]
  - Pallor [Recovered/Resolved]
  - Mobility decreased [Not Recovered/Not Resolved]
  - Snoring [Recovered/Resolved]
  - Pneumonia aspiration [Recovered/Resolved with Sequelae]
  - Body temperature decreased [Recovered/Resolved]
  - Tracheal haemorrhage [Recovered/Resolved]
  - Heart rate decreased [Recovered/Resolved]
  - Pneumonia [Unknown]
  - Oxygen saturation decreased [Recovered/Resolved]
  - Hyperhidrosis [Recovered/Resolved]
  - Syncope [Recovered/Resolved]
  - Hypertension [Unknown]
  - Pain [Unknown]
  - Atrophy [Not Recovered/Not Resolved]
  - Cardio-respiratory arrest [Recovered/Resolved]
  - C-reactive protein abnormal [Recovered/Resolved]
  - Cardiac arrest [Recovered/Resolved]
  - Increased bronchial secretion [Unknown]
  - Bradycardia [Recovered/Resolved]
  - Infection [Not Recovered/Not Resolved]
  - Device malfunction [Unknown]
  - Procedural pain [Unknown]

NARRATIVE: CASE EVENT DATE: 20181223
